FAERS Safety Report 19868056 (Version 8)
Quarter: 2023Q1

REPORT INFORMATION
  Report Type: Spontaneous
  Country: US (occurrence: US)
  Receive Date: 20210922
  Receipt Date: 20230103
  Transmission Date: 20230417
  Serious: Yes (Other)
  Sender: FDA-Public Use
  Company Number: US-PFIZER INC-202101203166

PATIENT
  Age: 57 Year
  Sex: Female
  Weight: 108.3 kg

DRUGS (36)
  1. IBRANCE [Suspect]
     Active Substance: PALBOCICLIB
     Indication: Breast cancer metastatic
     Dosage: 125 MG
     Dates: start: 20190101
  2. IBRANCE [Suspect]
     Active Substance: PALBOCICLIB
     Dosage: 125 MG
     Dates: start: 20200113
  3. IBRANCE [Suspect]
     Active Substance: PALBOCICLIB
     Dosage: 125 MG, CYCLIC (DAILY, 21 DAYS, 7 DAYS OFF)
     Route: 048
     Dates: start: 20200205
  4. IBRANCE [Suspect]
     Active Substance: PALBOCICLIB
     Dosage: 125 MG
     Dates: start: 20201113
  5. IBRANCE [Suspect]
     Active Substance: PALBOCICLIB
     Dosage: 125 MG
     Dates: start: 20210415
  6. IBRANCE [Suspect]
     Active Substance: PALBOCICLIB
     Dosage: UNK
     Dates: start: 20210907
  7. IBRANCE [Suspect]
     Active Substance: PALBOCICLIB
     Dosage: 125 MG
  8. IBRANCE [Suspect]
     Active Substance: PALBOCICLIB
     Dosage: 125 MG, DAILY
  9. IBRANCE [Suspect]
     Active Substance: PALBOCICLIB
     Dosage: 100 MG
  10. UREA [Concomitant]
     Active Substance: UREA
     Dosage: APPLY TOPICALLY NIGHTLY
  11. PRILOSEC [Concomitant]
     Active Substance: OMEPRAZOLE MAGNESIUM
     Dosage: 40 MG, 2X/DAY(TAKE 1 CAPSULE BY MOUTH TWICE DAILY)
     Route: 048
  12. NEURONTIN [Concomitant]
     Active Substance: GABAPENTIN
     Dosage: 300 MG(TAKE 1 CAPSULE BY MOUTH 3 TIMES DAILY, MORNING, NOON, AND EVENING AND 2 CAPSULES AT BED TIME)
     Route: 048
  13. WELLBUTRIN [Concomitant]
     Active Substance: BUPROPION HYDROCHLORIDE
     Dosage: 75 MG, 2X/DAY(TAKE 1 TABLET BY MOUTH 2 TIMES DAILY)
     Route: 048
  14. LYRICA [Concomitant]
     Active Substance: PREGABALIN
     Dosage: 100 MG, 3X/DAY(TAKE 1 TABLET BY MOUTH 3 TIMES DAILY)
  15. LYRICA [Concomitant]
     Active Substance: PREGABALIN
     Dosage: 100 MG, 2X/DAY(TAKE 1 CAPSULE BY MOUTH 2TIMES DAILY )
  16. NYAMYC [Concomitant]
     Active Substance: NYSTATIN
     Dosage: UNK, AS NEEDED(APPLY TOPICALLY 3 TIMES DAILY AS NEEDED)
     Route: 061
  17. LIPITOR [Concomitant]
     Active Substance: ATORVASTATIN CALCIUM
     Dosage: 20 MG, DAILY(TAKE 1 TABLET BY MOUTH DAILY)
     Route: 048
  18. ZANAFLEX [Concomitant]
     Active Substance: TIZANIDINE HYDROCHLORIDE
     Dosage: 4 MG, 3X/DAY(TAKE 1 TABLET BY MOUTH 3TIMES DAILY)
  19. PROZAC [Concomitant]
     Active Substance: FLUOXETINE HYDROCHLORIDE
     Dosage: 40 MG, DAILY(TAKE 1 CAPSULE BY MOURH DAILY)
     Route: 048
  20. KLONOPIN [Concomitant]
     Active Substance: CLONAZEPAM
     Dosage: 0.5 MG, AS NEEDED(TAKE 1-2 TABS PO PRN NIGHTLY AS NEEDED )
  21. MOBIC [Concomitant]
     Active Substance: MELOXICAM
     Dosage: 15 MG, DAILY(TAKE 1 TABLET BY MOUTH DAILY)
     Route: 048
  22. ADVAIR HFA [Concomitant]
     Active Substance: FLUTICASONE PROPIONATE\SALMETEROL XINAFOATE
     Dosage: UNK (INHALE 2 PUFFS INTO THE LUNGS 2 TIMES DAILY)
  23. PEPCID [Concomitant]
     Active Substance: FAMOTIDINE
     Dosage: 10 MG, 1X/DAY(TAKE 1 TABLET BY MOUTH NIGHTLY)
     Route: 048
  24. PROAIR HFA [Concomitant]
     Active Substance: ALBUTEROL SULFATE
     Dosage: UNK, AS NEEDED(INHALE 2 PUFFS INTO THE LUNGS  EVERY 4 HOURS AS NEEDED )
  25. FEMARA [Concomitant]
     Active Substance: LETROZOLE
     Dosage: 2.5 MG, DAILY(TAKE 1 TABLET BY MOUTH DAILY)
     Route: 048
  26. NORCO [Concomitant]
     Active Substance: ACETAMINOPHEN\HYDROCODONE BITARTRATE
     Dosage: UNK, AS NEEDED(TAKE 1-2 TABLET BY MOUTH EVERY 6 HOURS AS NEEDED )
     Route: 048
  27. LIDODERM [Concomitant]
     Active Substance: LIDOCAINE
     Dosage: UNK(PLACE 1 PATCH ONTO THE SKIN EVERY 24 HOURS. REMOVE PATCH 12 HOURS AFTER APPLYING)
  28. ZOFRAN [Concomitant]
     Active Substance: ONDANSETRON HYDROCHLORIDE
     Dosage: 4 MG, AS NEEDED(TAKE 1 TABLET BY MOUTH EVERY 8 HOURS AS NEEDED )
  29. MAGNESIUM [Concomitant]
     Active Substance: MAGNESIUM
     Dosage: 1250 MG, 2X/DAY(TAKES TWO TABLETS (1000MG) TWICE A DAY , AND 1/2 TABLET (250MG) AT BEDTIME)
  30. ZYRTEC [Concomitant]
     Active Substance: CETIRIZINE HYDROCHLORIDE
     Dosage: 10 MG, DAILY
     Route: 048
  31. TYLENOL [Concomitant]
     Active Substance: ACETAMINOPHEN
     Dosage: 650 MG, AS NEEDED(TAKE 650MG BY MOUTH EVERY 8 HOURS AS NEEDED)
     Route: 048
  32. ARISTOCORT [TRIAMCINOLONE] [Concomitant]
     Dosage: APPLY TO THREE TIMES DAILY AS NEEDED)
  33. MUCINEX [Concomitant]
     Active Substance: GUAIFENESIN
     Dosage: 600 MG, 2X/DAY (12 HRS TABLET, TAKE TWO TABLETS BY MOUTH)
     Route: 048
  34. TUMS [Concomitant]
     Active Substance: CALCIUM CARBONATE
     Dosage: TAKE BY MOUTH, 2X/DAY
     Route: 048
  35. CHOLECALCIFEROL [Concomitant]
     Active Substance: CHOLECALCIFEROL
     Dosage: 2000 UNITS TABLET (TAKE BY MOUTH 2 TIMES DAILY)
  36. PROBIOTICS NOS [Concomitant]
     Active Substance: PROBIOTICS NOS
     Dosage: TAKE 1 CAPSULE BY MOUTH, DAILY
     Route: 048

REACTIONS (9)
  - Knee operation [Unknown]
  - White blood cell count decreased [Recovered/Resolved]
  - Fatigue [Not Recovered/Not Resolved]
  - Amnesia [Unknown]
  - COVID-19 [Unknown]
  - Stomatitis [Recovering/Resolving]
  - Neutrophil count decreased [Unknown]
  - White blood cell count abnormal [Unknown]
  - Full blood count abnormal [Unknown]

NARRATIVE: CASE EVENT DATE: 20211012
